FAERS Safety Report 7968943-X (Version None)
Quarter: 2011Q4

REPORT INFORMATION
  Report Type: 
  Country: None (occurrence: None)
  Receive Date: 20111209
  Receipt Date: 20111207
  Transmission Date: 20120403
  Serious: Yes (Death, Other)
  Sender: FDA-Public Use
  Company Number: VE-ELI_LILLY_AND_COMPANY-VE201110008085

PATIENT
  Age: 40 Year
  Sex: Female

DRUGS (1)
  1. EFFIENT [Suspect]
     Dosage: UNK, UNKNOWN
     Route: 065

REACTIONS (5)
  - OVERDOSE [None]
  - ATRIAL FIBRILLATION [None]
  - SUBDURAL HAEMATOMA [None]
  - OFF LABEL USE [None]
  - DEATH [None]
